FAERS Safety Report 17985866 (Version 2)
Quarter: 2020Q4

REPORT INFORMATION
  Report Type: Report from Study
  Country: None (occurrence: US)
  Receive Date: 20200707
  Receipt Date: 20201006
  Transmission Date: 20210113
  Serious: Yes (Other)
  Sender: FDA-Public Use
  Company Number: US-ABBVIE-20K-163-3389603-00

PATIENT
  Sex: Male

DRUGS (2)
  1. VENCLEXTA [Suspect]
     Active Substance: VENETOCLAX
     Route: 048
     Dates: start: 2020
  2. VENCLEXTA [Suspect]
     Active Substance: VENETOCLAX
     Indication: CHRONIC LYMPHOCYTIC LEUKAEMIA
     Route: 048
     Dates: start: 20200210, end: 2020

REACTIONS (8)
  - Facial paralysis [Unknown]
  - Cerebrovascular accident [Unknown]
  - Spleen atrophy [Unknown]
  - Rash macular [Unknown]
  - Fatigue [Unknown]
  - Lymphadenopathy [Unknown]
  - White blood cell count abnormal [Unknown]
  - Decreased activity [Unknown]

NARRATIVE: CASE EVENT DATE: 2020
